FAERS Safety Report 23914463 (Version 1)
Quarter: 2024Q2

REPORT INFORMATION
  Report Type: Spontaneous
  Country: US (occurrence: US)
  Receive Date: 20240529
  Receipt Date: 20240529
  Transmission Date: 20240715
  Serious: Yes (Death, Life-Threatening, Hospitalization, Other)
  Sender: FDA-Public Use
  Company Number: US-SUN PHARMACEUTICAL INDUSTRIES LTD-2024R1-447794

PATIENT
  Age: 29 Year
  Sex: Female

DRUGS (2)
  1. VERAPAMIL [Suspect]
     Active Substance: VERAPAMIL HYDROCHLORIDE
     Indication: Vasospasm
     Dosage: UNK
     Route: 065
  2. NICARDIPINE [Suspect]
     Active Substance: NICARDIPINE
     Indication: Vasospasm
     Dosage: UNK
     Route: 065

REACTIONS (7)
  - Fusarium infection [Fatal]
  - Therapy non-responder [Fatal]
  - Dysphagia [Fatal]
  - Brain stem stroke [Fatal]
  - Hydrocephalus [Fatal]
  - Brain herniation [Fatal]
  - Intraventricular haemorrhage [Fatal]
